FAERS Safety Report 8002508-9 (Version None)
Quarter: 2011Q4

REPORT INFORMATION
  Report Type: 
  Country: None (occurrence: None)
  Receive Date: 20111222
  Receipt Date: 20111213
  Transmission Date: 20120403
  Serious: Yes (Hospitalization, Other)
  Sender: FDA-Public Use
  Company Number: FR-JNJFOC-20111009440

PATIENT
  Age: 63 Year
  Sex: Female

DRUGS (6)
  1. SULFASALAZINE [Concomitant]
     Indication: ARTHRALGIA
     Dates: start: 20110101
  2. REMICADE [Suspect]
     Indication: SPONDYLOARTHROPATHY
     Dosage: EVERY 6 TO 8 WEEKS
     Route: 042
     Dates: start: 20090327, end: 20101228
  3. HUMIRA [Suspect]
     Route: 058
     Dates: end: 20090301
  4. HUMIRA [Suspect]
     Indication: SPONDYLOARTHROPATHY
     Route: 058
     Dates: start: 20080620, end: 20081001
  5. FLURBIPROFEN [Concomitant]
     Indication: SPONDYLOARTHROPATHY
     Dosage: 100 TO 300 MG
     Route: 048
     Dates: start: 20100101, end: 20101201
  6. ENBREL [Suspect]
     Indication: SPONDYLOARTHROPATHY
     Route: 058
     Dates: start: 20070629, end: 20080620

REACTIONS (1)
  - RECTAL CANCER [None]
